FAERS Safety Report 22623594 (Version 2)
Quarter: 2023Q2

REPORT INFORMATION
  Report Type: Report from Study
  Country: DE (occurrence: DE)
  Receive Date: 20230621
  Receipt Date: 20230627
  Transmission Date: 20230722
  Serious: Yes (Hospitalization)
  Sender: FDA-Public Use
  Company Number: DE-INSMED, INC.-2023-02264-DE

PATIENT
  Age: 53 Year
  Sex: Female

DRUGS (2)
  1. ARIKAYCE [Suspect]
     Active Substance: AMIKACIN
     Indication: Atypical mycobacterial infection
     Dosage: 590 MILLIGRAM, QD
     Route: 055
     Dates: start: 20230427, end: 20230506
  2. ARIKAYCE [Suspect]
     Active Substance: AMIKACIN
     Dosage: UNK

REACTIONS (4)
  - Hospitalisation [Unknown]
  - Infection [Unknown]
  - Adverse drug reaction [Unknown]
  - Therapy interrupted [Unknown]

NARRATIVE: CASE EVENT DATE: 20230101
